FAERS Safety Report 11595550 (Version 2)
Quarter: 2015Q4

REPORT INFORMATION
  Report Type: Spontaneous
  Country: FR (occurrence: FR)
  Receive Date: 20151006
  Receipt Date: 20151026
  Transmission Date: 20160304
  Serious: Yes (Hospitalization)
  Sender: FDA-Public Use
  Company Number: FR-PFIZER INC-2015320060

PATIENT
  Age: 77 Year
  Sex: Male

DRUGS (11)
  1. TRAMADOL. [Suspect]
     Active Substance: TRAMADOL
     Dosage: 50 MG, UNK
     Route: 042
     Dates: start: 20150821, end: 20150901
  2. METFORMIN [Concomitant]
     Active Substance: METFORMIN HYDROCHLORIDE
     Dosage: UNK
     Route: 048
     Dates: start: 20140807
  3. ZELITREX [Concomitant]
     Active Substance: VALACYCLOVIR HYDROCHLORIDE
     Dosage: UNK
     Route: 048
     Dates: start: 20140807
  4. BACTRIM [Concomitant]
     Active Substance: SULFAMETHOXAZOLE\TRIMETHOPRIM
     Dosage: UNK
     Dates: start: 20140807
  5. TORISEL [Suspect]
     Active Substance: TEMSIROLIMUS
     Indication: B-CELL LYMPHOMA
     Dosage: 75 MG TOTAL INTAKE PER CYCLE ON DAY 1 AND DAY 7
     Route: 042
     Dates: start: 20150821, end: 20150827
  6. ACUPAN [Suspect]
     Active Substance: NEFOPAM HYDROCHLORIDE
     Dosage: UNK
     Route: 042
     Dates: start: 20150821, end: 20150901
  7. RAMIPRIL. [Concomitant]
     Active Substance: RAMIPRIL
     Dosage: UNK
     Route: 048
     Dates: start: 20141201
  8. MABTHERA [Suspect]
     Active Substance: RITUXIMAB
     Indication: B-CELL LYMPHOMA
     Dosage: UNK
     Route: 042
     Dates: start: 20150821
  9. ERWINASE /07841701/ [Suspect]
     Active Substance: ASPARAGINASE ERWINIA CHRYSANTHEMI
     Indication: B-CELL LYMPHOMA
     Dosage: 37400 IU TOTAL INTAKE PER CYCLE ON DAY 1, DAY 3, DAY 5 AND DAY 7
     Route: 042
     Dates: start: 20150821, end: 20150827
  10. NOCTAMIDE [Concomitant]
     Active Substance: LORMETAZEPAM
     Dosage: UNK
     Dates: end: 20150829
  11. ORACILLINE /00001801/ [Concomitant]
     Active Substance: PENICILLIN V
     Dosage: UNK
     Route: 048
     Dates: start: 20150301

REACTIONS (5)
  - Encephalopathy [Recovered/Resolved]
  - Confusional state [Recovered/Resolved]
  - Stupor [Recovered/Resolved]
  - Disorientation [Recovered/Resolved]
  - Hyperammonaemia [Recovered/Resolved]

NARRATIVE: CASE EVENT DATE: 20150829
